FAERS Safety Report 11285493 (Version 1)
Quarter: 2015Q3

REPORT INFORMATION
  Report Type: Spontaneous
  Country: US (occurrence: US)
  Receive Date: 20150720
  Receipt Date: 20150720
  Transmission Date: 20151125
  Serious: Yes (Other)
  Sender: FDA-Public Use
  Company Number: US-TARO-2015TAR00660

PATIENT
  Sex: Female
  Weight: 83.9 kg

DRUGS (10)
  1. ETODOLAC TABLETS 400 MG [Suspect]
     Active Substance: ETODOLAC
     Indication: TENDONITIS
  2. ETODOLAC TABLETS 400 MG [Suspect]
     Active Substance: ETODOLAC
     Indication: VERTIGO
  3. UNSPECIFIED VITAMIN(S) [Concomitant]
     Dosage: UNK, 1X/DAY
  4. ETODOLAC TABLETS 400 MG [Suspect]
     Active Substance: ETODOLAC
     Indication: WRIST DEFORMITY
  5. ETODOLAC TABLETS 400 MG [Suspect]
     Active Substance: ETODOLAC
     Indication: TINNITUS
  6. ETODOLAC TABLETS 400 MG [Suspect]
     Active Substance: ETODOLAC
     Indication: SPINE MALFORMATION
  7. ETODOLAC TABLETS 400 MG [Suspect]
     Active Substance: ETODOLAC
     Indication: PAIN
     Dosage: UNK UNK, AS NEEDED
     Route: 048
     Dates: start: 2007
  8. ETODOLAC TABLETS 400 MG [Suspect]
     Active Substance: ETODOLAC
     Indication: ROTATOR CUFF SYNDROME
  9. ETODOLAC TABLETS 400 MG [Suspect]
     Active Substance: ETODOLAC
     Indication: MIGRAINE
  10. ETODOLAC TABLETS 400 MG [Suspect]
     Active Substance: ETODOLAC
     Indication: TOE OPERATION

REACTIONS (11)
  - Visual impairment [Recovering/Resolving]
  - Eye movement disorder [Not Recovered/Not Resolved]
  - Upper limb fracture [Unknown]
  - Eye haemorrhage [Unknown]
  - Drug ineffective [Not Recovered/Not Resolved]
  - Eyelid cyst [Not Recovered/Not Resolved]
  - Back injury [Unknown]
  - Road traffic accident [Recovered/Resolved]
  - Off label use [Not Recovered/Not Resolved]
  - Fall [Recovered/Resolved]
  - Injury [Unknown]

NARRATIVE: CASE EVENT DATE: 2014
